FAERS Safety Report 5822967-7 (Version None)
Quarter: 2008Q3

REPORT INFORMATION
  Report Type: 
  Country: None (occurrence: None)
  Receive Date: 20080725
  Receipt Date: 20080722
  Transmission Date: 20090109
  Serious: Yes (Hospitalization)
  Sender: FDA-Public Use
  Company Number: A0739432A

PATIENT
  Age: 56 Year
  Sex: Male
  Weight: 95.5 kg

DRUGS (4)
  1. AVANDIA [Suspect]
     Dosage: 4MG PER DAY
     Route: 048
     Dates: start: 20010206, end: 20021001
  2. ACTOS [Concomitant]
     Dates: start: 20021004, end: 20050117
  3. LANTUS [Concomitant]
     Dates: start: 20040528, end: 20050131
  4. PRAVASTATIN [Concomitant]
     Dates: start: 20030201, end: 20051201

REACTIONS (1)
  - MYOCARDIAL INFARCTION [None]
